FAERS Safety Report 24144949 (Version 1)
Quarter: 2024Q3

REPORT INFORMATION
  Report Type: Spontaneous
  Country: US (occurrence: US)
  Receive Date: 20240729
  Receipt Date: 20240729
  Transmission Date: 20241017
  Serious: No
  Sender: JOHNSON AND JOHNSON
  Company Number: US-JNJFOC-20240764596

PATIENT
  Age: 6 Decade
  Sex: Male
  Weight: 82.7 kg

DRUGS (4)
  1. TALVEY [Suspect]
     Active Substance: TALQUETAMAB-TGVS
     Indication: Plasma cell myeloma
     Route: 065
     Dates: start: 20240610
  2. TALVEY [Suspect]
     Active Substance: TALQUETAMAB-TGVS
     Dosage: DAY 1, 0.01 MG/KG
     Route: 065
     Dates: start: 20240612
  3. TALVEY [Suspect]
     Active Substance: TALQUETAMAB-TGVS
     Dosage: DAY 3, 0.06 MG/KG
     Route: 065
     Dates: start: 20240614
  4. TALVEY [Suspect]
     Active Substance: TALQUETAMAB-TGVS
     Dosage: DAY 5,  0.4 MG/KG
     Route: 065
     Dates: start: 20240616

REACTIONS (2)
  - Rash maculo-papular [Unknown]
  - Skin exfoliation [Unknown]
